FAERS Safety Report 5013598-X (Version None)
Quarter: 2006Q2

REPORT INFORMATION
  Report Type: 
  Country: None (occurrence: None)
  Receive Date: 20060530
  Receipt Date: 20060510
  Transmission Date: 20061013
  Serious: Yes (Hospitalization, Disabling)
  Sender: FDA-Public Use
  Company Number: US-GLAXOSMITHKLINE-A0605051A

PATIENT
  Age: 77 Year
  Sex: Female
  Weight: 57.7 kg

DRUGS (9)
  1. ZOFRAN [Suspect]
     Indication: DRUG USE FOR UNKNOWN INDICATION
     Route: 042
     Dates: start: 20060424, end: 20060424
  2. DIOVAN HCT [Concomitant]
  3. TOPROL-XL [Concomitant]
  4. PLAVIX [Concomitant]
  5. LEVOXYL [Concomitant]
  6. ASPIRIN [Concomitant]
  7. FOSAMAX [Concomitant]
  8. MODURETIC 5-50 [Concomitant]
  9. CALCIUM + VIT D [Concomitant]

REACTIONS (3)
  - BALANCE DISORDER [None]
  - DEAFNESS NEUROSENSORY [None]
  - TINNITUS [None]
